FAERS Safety Report 12266780 (Version 1)
Quarter: 2016Q2

REPORT INFORMATION
  Report Type: Spontaneous
  Country: US (occurrence: US)
  Receive Date: 20160414
  Receipt Date: 20160414
  Transmission Date: 20160815
  Serious: No
  Sender: FDA-Public Use
  Company Number: US-BIOGEN-2016BI00217635

PATIENT
  Sex: Female

DRUGS (2)
  1. BETASERON [Concomitant]
     Active Substance: INTERFERON BETA-1B
  2. TYSABRI [Suspect]
     Active Substance: NATALIZUMAB
     Indication: MULTIPLE SCLEROSIS
     Dates: start: 20131111, end: 20150408

REACTIONS (1)
  - Upper extremity mass [Recovered/Resolved]
